FAERS Safety Report 9387401 (Version 1)
Quarter: 2013Q3

REPORT INFORMATION
  Report Type: Spontaneous
  Country: US (occurrence: None)
  Receive Date: 20130702
  Receipt Date: 20130702
  Transmission Date: 20140515
  Serious: Yes (Hospitalization, Disabling)
  Sender: FDA-Public Use
  Company Number: 1768932

PATIENT
  Age: 57 Year
  Sex: Male

DRUGS (3)
  1. HEPARIN SODIUM [Suspect]
     Indication: DEEP VEIN THROMBOSIS
  2. ENOXAPARIN [Suspect]
  3. WARFARIN [Concomitant]

REACTIONS (3)
  - Deep vein thrombosis [None]
  - Compartment syndrome [None]
  - Heparin-induced thrombocytopenia [None]
